FAERS Safety Report 9447847 (Version 1)
Quarter: 2013Q3

REPORT INFORMATION
  Report Type: Spontaneous
  Country: US (occurrence: US)
  Receive Date: 20130808
  Receipt Date: 20130808
  Transmission Date: 20140515
  Serious: Yes (Hospitalization)
  Sender: FDA-Public Use
  Company Number: US-BRISTOL-MYERS SQUIBB COMPANY-19149384

PATIENT
  Age: 47 Year
  Sex: Male
  Weight: 68 kg

DRUGS (4)
  1. REYATAZ CAPS 300 MG [Suspect]
     Route: 048
  2. RITONAVIR [Concomitant]
  3. ATOVAQUONE [Concomitant]
  4. REGLAN [Concomitant]

REACTIONS (3)
  - Tuberculosis [Unknown]
  - Nausea [Unknown]
  - Drug administration error [Unknown]
